FAERS Safety Report 9710399 (Version 1)
Quarter: 2013Q4

REPORT INFORMATION
  Report Type: Spontaneous
  Country: US (occurrence: US)
  Receive Date: 20131126
  Receipt Date: 20131126
  Transmission Date: 20140711
  Serious: No
  Sender: FDA-Public Use
  Company Number: US-BRISTOL-MYERS SQUIBB COMPANY-18973743

PATIENT
  Age: 44 Year
  Sex: Female
  Weight: 72.56 kg

DRUGS (2)
  1. BYDUREON [Suspect]
     Indication: TYPE 2 DIABETES MELLITUS
     Dosage: 2 DOSES
     Dates: start: 20130522
  2. LANTUS [Suspect]
     Dosage: 32 UNITS QPM

REACTIONS (6)
  - Dizziness [Recovered/Resolved]
  - Injection site haemorrhage [Unknown]
  - Injection site extravasation [Unknown]
  - Frequent bowel movements [Unknown]
  - Increased appetite [Unknown]
  - Blood glucose increased [Unknown]
